FAERS Safety Report 4938808-6 (Version None)
Quarter: 2006Q1

REPORT INFORMATION
  Report Type: 
  Country: None (occurrence: None)
  Receive Date: 20060306
  Receipt Date: 20060222
  Transmission Date: 20060701
  Serious: Yes (Other)
  Sender: FDA-Public Use
  Company Number: 2006-02-1559

PATIENT
  Sex: Female

DRUGS (1)
  1. ISOSORBIDE MONONITRATE [Suspect]
     Dosage: ORAL
     Route: 048

REACTIONS (4)
  - DRUG HYPERSENSITIVITY [None]
  - HEPATOCELLULAR DAMAGE [None]
  - OEDEMA [None]
  - SKIN EXFOLIATION [None]
